FAERS Safety Report 8985127 (Version 1)
Quarter: 2012Q4

REPORT INFORMATION
  Report Type: 
  Country: US (occurrence: US)
  Receive Date: 20121226
  Receipt Date: 20121226
  Transmission Date: 20130627
  Serious: No
  Sender: FDA-Public Use
  Company Number: US-PFIZER INC-2012326895

PATIENT
  Age: 59 Year
  Sex: Male
  Weight: 83.9 kg

DRUGS (1)
  1. NORVASC [Suspect]
     Dosage: 10 mg, daily
     Dates: start: 201203

REACTIONS (2)
  - Alopecia [Unknown]
  - Hair disorder [Unknown]
